FAERS Safety Report 11223771 (Version 3)
Quarter: 2023Q4

REPORT INFORMATION
  Report Type: Report from Study
  Country: US (occurrence: US)
  Receive Date: 20150629
  Receipt Date: 20231222
  Transmission Date: 20240110
  Serious: Yes (Other)
  Sender: FDA-Public Use
  Company Number: US-AMGEN-USASP2015062152

PATIENT
  Age: 52 Year
  Sex: Female

DRUGS (3)
  1. ENBREL [Suspect]
     Active Substance: ETANERCEPT
     Indication: Polychondritis
     Dosage: 50 MILLIGRAM, QWK
     Route: 065
     Dates: start: 20120601
  2. ENBREL [Suspect]
     Active Substance: ETANERCEPT
     Indication: Off label use
     Dosage: 50 MILLIGRAM, QWK
     Route: 065
  3. COLCHICINE [Concomitant]
     Active Substance: COLCHICINE
     Dosage: 0.6 MILLIGRAM, QD
     Route: 065

REACTIONS (7)
  - Pneumonia [Unknown]
  - Polychondritis [Unknown]
  - Candida infection [Unknown]
  - Lymphadenopathy [Unknown]
  - Oropharyngeal pain [Unknown]
  - Oral pain [Unknown]
  - Off label use [Unknown]

NARRATIVE: CASE EVENT DATE: 20120601
